FAERS Safety Report 8777609 (Version 2)
Quarter: 2012Q4

REPORT INFORMATION
  Report Type: 
  Country: ZA (occurrence: ZA)
  Receive Date: 20120912
  Receipt Date: 20120922
  Transmission Date: 20130627
  Serious: Yes (Other)
  Sender: FDA-Public Use
  Company Number: ZA-ABBOTT-12P-143-0977460-00

PATIENT
  Age: 12 Year
  Sex: Male

DRUGS (4)
  1. EPILIM [Suspect]
     Indication: AFFECTIVE DISORDER
     Route: 048
     Dates: end: 2012
  2. RISPERDAL [Concomitant]
     Indication: PRODUCT USED FOR UNKNOWN INDICATION
  3. RITALIN [Concomitant]
     Indication: PRODUCT USED FOR UNKNOWN INDICATION
     Dates: end: 201208
  4. TOFRANIL [Concomitant]
     Indication: PRODUCT USED FOR UNKNOWN INDICATION
     Dates: end: 201208

REACTIONS (2)
  - Hand fracture [Recovering/Resolving]
  - Aggression [Recovering/Resolving]
